FAERS Safety Report 19381114 (Version 1)
Quarter: 2021Q2

REPORT INFORMATION
  Report Type: Spontaneous
  Country: US (occurrence: US)
  Receive Date: 20210607
  Receipt Date: 20210607
  Transmission Date: 20210717
  Serious: No
  Sender: FDA-Public Use
  Company Number: NVSC2021US121382

PATIENT
  Sex: Male

DRUGS (8)
  1. IMATINIB. [Suspect]
     Active Substance: IMATINIB MESYLATE
     Dosage: UNK
     Route: 065
     Dates: start: 20180801, end: 20181001
  2. IMATINIB. [Suspect]
     Active Substance: IMATINIB MESYLATE
     Indication: CHRONIC MYELOID LEUKAEMIA
     Dosage: 400 MG (PO DAILY)
     Route: 065
     Dates: start: 20180831, end: 20181001
  3. ASCIMINIB [Suspect]
     Active Substance: ASCIMINIB
     Indication: CHRONIC MYELOID LEUKAEMIA
     Dosage: UNK
     Route: 065
  4. DASATINIB. [Suspect]
     Active Substance: DASATINIB
     Dosage: 100 MG (PO DAILY)
     Route: 065
     Dates: start: 20181105, end: 20200728
  5. BOSUTINIB [Suspect]
     Active Substance: BOSUTINIB
     Dosage: UNK
     Route: 065
     Dates: start: 20200801, end: 20201231
  6. BOSUTINIB [Suspect]
     Active Substance: BOSUTINIB
     Indication: CHRONIC MYELOID LEUKAEMIA
     Dosage: 500 MG (PO DAILY)
     Route: 065
     Dates: start: 202008
  7. BOSUTINIB [Suspect]
     Active Substance: BOSUTINIB
     Dosage: 300 MG (PO DAILY)
     Route: 065
     Dates: start: 202010
  8. DASATINIB. [Suspect]
     Active Substance: DASATINIB
     Indication: CHRONIC MYELOID LEUKAEMIA
     Dosage: 100 MG, QD (DAILY)
     Route: 065
     Dates: start: 20210406

REACTIONS (3)
  - Rash [Unknown]
  - Drug intolerance [Unknown]
  - Mucosal inflammation [Unknown]
